FAERS Safety Report 12986770 (Version 2)
Quarter: 2018Q4

REPORT INFORMATION
  Report Type: Spontaneous
  Country: NL (occurrence: NL)
  Receive Date: 20161130
  Receipt Date: 20181115
  Transmission Date: 20190204
  Serious: Yes (Life-Threatening)
  Sender: FDA-Public Use
  Company Number: NL-TEVA-713568ACC

PATIENT
  Age: 80 Year
  Sex: Female
  Weight: 70 kg

DRUGS (18)
  1. NOVOMIX 30 PENFILL INJ 100E/ML PATROON 3ML [Concomitant]
     Active Substance: INSULIN ASPART
     Dosage: 2 DOSAGE FORMS DAILY; ONCE DAILY ONE DOSAGE
     Route: 058
     Dates: start: 20150414
  2. PANTOPRAZOL PENSA TABLET MSR 40MG [Concomitant]
     Active Substance: PANTOPRAZOLE SODIUM
     Dosage: 40 MILLIGRAM DAILY; 1 TIME PER DAY 1 PIECE(S)
     Route: 048
     Dates: start: 20050804
  3. FENTANYL MATRIX SANDOZ PLEISTER  25MCG/UUR [Concomitant]
     Dosage: .3333 DOSAGE FORMS DAILY; 1 TIME PER 3 DAYS
     Route: 062
     Dates: start: 20160912
  4. SOTALOL HCL PCH TABLET  40MG [Concomitant]
     Active Substance: SOTALOL HYDROCHLORIDE
     Dosage: 80 MILLIGRAM DAILY; 2 TIMES PER DAY 1 PIECE(S)
     Route: 048
     Dates: start: 20140408
  5. CHOLECALCIFEROL WILL PHARMA TAB FILMOMHULD   800IE [Concomitant]
     Active Substance: CHOLECALCIFEROL
     Dosage: 800 IU (INTERNATIONAL UNIT) DAILY; 1 TIME PER DAY 1 PIECE(S)
     Route: 048
     Dates: start: 20160921
  6. ACENOCOUMAROL TEVA TABLET 1MG [Concomitant]
     Dosage: ACCORDING PRESCRIPTION
     Route: 048
     Dates: start: 20101125
  7. FUROSEMIDE PCH TABLET 40MG [Concomitant]
     Dosage: 40 MILLIGRAM DAILY; 1 TIME PER DAY 1 PIECE(S)
     Route: 048
     Dates: start: 20121016
  8. ATORVASTATINE FOCUS TABLET FILMOMHULD 40MG [Concomitant]
     Dosage: 40 MILLIGRAM DAILY; 1 TIME PER DAY 1 PIECE(S)
     Route: 048
     Dates: start: 20121016
  9. TEMAZEPAM PCH CAPSULE 10MG [Suspect]
     Active Substance: TEMAZEPAM
     Indication: INSOMNIA
     Dosage: 10 MILLIGRAM DAILY; TWICE DAILY
     Route: 048
     Dates: start: 20161013, end: 20161016
  10. AMLODIPINE TABLET  2,5MG (ALS BESILAAT)        DMB [Concomitant]
     Active Substance: AMLODIPINE BESYLATE
     Dosage: 2.5 MILLIGRAM DAILY; 1 TIME PER DAY 1 PIECE(S)
     Route: 048
     Dates: start: 20150917
  11. NITROGLYCERINE SDZ OROMUC SPRAY 0,4MG/DO FL 200DO [Concomitant]
     Dosage: 1 DOSAGE FORMS DAILY; 1 TIME PER DAY 1-2 SPRAY
     Route: 060
     Dates: start: 20130207
  12. METFORMINE HCL SANDOZ TABLET FILMOMHULD  500MG [Concomitant]
     Dosage: 1000 MILLIGRAM DAILY; 2 TIMES PER DAY 1 PIECE(S)
     Route: 048
     Dates: start: 20090605
  13. SPIRONOLACTON TABLET 12,5MG                    DMB [Concomitant]
     Dosage: 12.5 MILLIGRAM DAILY; 1 TIME PER DAY 1 PIECE(S)
     Route: 048
     Dates: start: 20150414
  14. PARACETAMOL TEVA TABLET 1000MG [Concomitant]
     Active Substance: ACETAMINOPHEN
     Dosage: 4000 MILLIGRAM DAILY; 4 TIMES PER DAY 1 PIECE(S)
     Route: 048
     Dates: start: 20120417
  15. LACTULOSESTROOP PCH 667MG/ML [Concomitant]
     Active Substance: LACTULOSE
     Dosage: 15 ML DAILY; 1 TIME PER DAY 15ML
     Route: 048
     Dates: start: 20160910
  16. IRBESARTAN JUBILANT TABLET FILMOMHULD  75MG [Concomitant]
     Dosage: 75 MILLIGRAM DAILY; 1 TIME PER DAY 1 PIECE(S)
     Route: 048
  17. SALBUTAMOL PCH AER CFKVR 100MCG/DO SPBS 200DO +INH [Concomitant]
     Dosage: 8 DOSAGE FORMS DAILY; 4-6 TIMES PER DAY 2 INHALATIONS IF NEEDED
     Route: 055
     Dates: start: 20160229
  18. SERETIDE AEROSOL 25/250MCG/DO CFKVR SPBS 120DO+INH [Concomitant]
     Dosage: 4 DOSAGE FORMS DAILY; 2 TIMES PER DAY TWO INHALATIONS
     Route: 055
     Dates: start: 20160229

REACTIONS (4)
  - Skin exfoliation [Recovering/Resolving]
  - Therapeutic response unexpected [Recovering/Resolving]
  - Product complaint [Recovering/Resolving]
  - Erythema [Recovering/Resolving]

NARRATIVE: CASE EVENT DATE: 20161015
